FAERS Safety Report 4931169-8 (Version None)
Quarter: 2006Q1

REPORT INFORMATION
  Report Type: 
  Country: None (occurrence: None)
  Receive Date: 20060302
  Receipt Date: 20051024
  Transmission Date: 20060701
  Serious: Yes (Hospitalization)
  Sender: FDA-Public Use
  Company Number: US-MERCK-0510USA08787

PATIENT
  Age: 79 Year
  Sex: Male
  Weight: 73 kg

DRUGS (7)
  1. ASPIRIN [Concomitant]
     Route: 065
  2. TYLENOL (CAPLET) [Concomitant]
     Route: 065
  3. ZYLOPRIM [Concomitant]
     Route: 065
  4. COLBENEMID [Concomitant]
     Route: 048
  5. RHINOCORT [Concomitant]
     Route: 065
  6. VIOXX [Suspect]
     Indication: ARTHRITIS
     Route: 048
     Dates: start: 19991115, end: 20011220
  7. VIOXX [Suspect]
     Route: 048
     Dates: start: 20020101, end: 20041201

REACTIONS (7)
  - ACUTE MYOCARDIAL INFARCTION [None]
  - CHEST DISCOMFORT [None]
  - FAECES DISCOLOURED [None]
  - FALL [None]
  - SYNCOPE [None]
  - THROMBOPHLEBITIS [None]
  - VENTRICULAR TACHYCARDIA [None]
